FAERS Safety Report 4680206-7 (Version None)
Quarter: 2005Q2

REPORT INFORMATION
  Report Type: 
  Country: None (occurrence: None)
  Receive Date: 20050531
  Receipt Date: 20041206
  Transmission Date: 20051028
  Serious: Yes (Hospitalization)
  Sender: FDA-Public Use
  Company Number: NL-2004-036093

PATIENT
  Sex: Male

DRUGS (4)
  1. QUADRAMET [Suspect]
     Indication: PROSTATE CANCER METASTATIC
     Dosage: INTRAVENOUS
     Route: 042
     Dates: start: 20041012, end: 20041012
  2. QUADRAMET [Suspect]
     Indication: PROSTATE CANCER METASTATIC
     Dosage: INTRAVENOUS
     Route: 042
     Dates: start: 20041026, end: 20041026
  3. ZOMETA [Suspect]
     Dates: start: 20041024, end: 20041024
  4. ZOMETA [Suspect]
     Dates: start: 20041123, end: 20041123

REACTIONS (8)
  - ANAEMIA [None]
  - LYMPHADENOPATHY [None]
  - MALIGNANT NEOPLASM PROGRESSION [None]
  - NAUSEA [None]
  - PAIN [None]
  - PLATELET COUNT DECREASED [None]
  - PROSTATE CANCER [None]
  - WHITE BLOOD CELL COUNT DECREASED [None]
